FAERS Safety Report 18310870 (Version 1)
Quarter: 2020Q3

REPORT INFORMATION
  Report Type: Spontaneous
  Country: US (occurrence: US)
  Receive Date: 20200924
  Receipt Date: 20200924
  Transmission Date: 20201103
  Serious: Yes (Life-Threatening, Hospitalization, Other)
  Sender: FDA-Public Use
  Company Number: None

PATIENT
  Age: 35 Year
  Sex: Female

DRUGS (1)
  1. ARMOUR THYROID [Suspect]
     Active Substance: THYROID, PORCINE
     Route: 048
     Dates: start: 202002, end: 202007

REACTIONS (4)
  - Palpitations [None]
  - Cardiac arrest [None]
  - Coma [None]
  - Product substitution issue [None]

NARRATIVE: CASE EVENT DATE: 20200504
